FAERS Safety Report 20884005 (Version 1)
Quarter: 2022Q2

REPORT INFORMATION
  Report Type: Spontaneous
  Country: FR (occurrence: FR)
  Receive Date: 20220527
  Receipt Date: 20220527
  Transmission Date: 20220721
  Serious: Yes (Death)
  Sender: FDA-Public Use
  Company Number: None

PATIENT
  Sex: Male

DRUGS (4)
  1. BUPRENORPHINE [Suspect]
     Active Substance: BUPRENORPHINE
     Dosage: UNSPECIFIED
     Route: 065
     Dates: end: 202203
  2. COCAINE [Suspect]
     Active Substance: COCAINE
     Dosage: UNSPECIFIED
     Route: 065
     Dates: end: 202203
  3. BENZOYLECGONINE [Suspect]
     Active Substance: BENZOYLECGONINE
     Dosage: UNSPECIFIED
     Route: 065
     Dates: end: 202203
  4. ALCOHOL [Suspect]
     Active Substance: ALCOHOL
     Dosage: UNSPECIFIED
     Route: 065
     Dates: end: 202203

REACTIONS (2)
  - Drug abuse [Fatal]
  - Gastrointestinal haemorrhage [Fatal]

NARRATIVE: CASE EVENT DATE: 20220301
